FAERS Safety Report 20320583 (Version 1)
Quarter: 2022Q1

REPORT INFORMATION
  Report Type: Spontaneous
  Country: US (occurrence: US)
  Receive Date: 20220111
  Receipt Date: 20220111
  Transmission Date: 20220423
  Serious: No
  Sender: FDA-Public Use
  Company Number: US-GLAXOSMITHKLINE-US2022000349

PATIENT
  Age: 57 Year
  Sex: Female

DRUGS (1)
  1. ANORO ELLIPTA [Suspect]
     Active Substance: UMECLIDINIUM BROMIDE\VILANTEROL TRIFENATATE
     Indication: Chronic obstructive pulmonary disease
     Dosage: 1 PUFF(S), QD, ANORO ELLIPTA 62.5-25 ORAL INH(30S)USE ONE INHALATION BY MOUTH ONCE DAILY
     Route: 055
     Dates: start: 202006

REACTIONS (3)
  - COVID-19 [Recovering/Resolving]
  - Oxygen therapy [Unknown]
  - Product dose omission issue [Unknown]

NARRATIVE: CASE EVENT DATE: 20211030
